FAERS Safety Report 9650503 (Version 4)
Quarter: 2014Q2

REPORT INFORMATION
  Report Type: Report from Study
  Country: GB (occurrence: GB)
  Receive Date: 20131029
  Receipt Date: 20140408
  Transmission Date: 20141212
  Serious: Yes (Death)
  Sender: FDA-Public Use
  Company Number: GB-AMGEN-GBRCT2013075503

PATIENT
  Age: 69 Year
  Sex: Male
  Weight: 83 kg

DRUGS (1)
  1. ETANERCEPT [Suspect]
     Indication: RHEUMATOID ARTHRITIS
     Dosage: 25 MG, 2X/WEEK
     Route: 065
     Dates: start: 20031111, end: 20080115

REACTIONS (2)
  - Idiopathic pulmonary fibrosis [Fatal]
  - Bronchopneumonia [Fatal]
